FAERS Safety Report 4412797-5 (Version None)
Quarter: 2004Q3

REPORT INFORMATION
  Report Type: 
  Country: None (occurrence: None)
  Receive Date: 20040727
  Receipt Date: 20040714
  Transmission Date: 20050211
  Serious: Yes (Death)
  Sender: FDA-Public Use
  Company Number: 2004048769

PATIENT
  Age: 55 Year
  Sex: Male

DRUGS (1)
  1. GEODON [Suspect]
     Indication: ILL-DEFINED DISORDER
     Dosage: 320 MG (1 IN 1 D) ORAL
     Route: 048

REACTIONS (3)
  - CARDIAC DISORDER [None]
  - FEELING ABNORMAL [None]
  - METABOLIC SYNDROME [None]
